FAERS Safety Report 7106225-9 (Version None)
Quarter: 2010Q4

REPORT INFORMATION
  Report Type: 
  Country: None (occurrence: None)
  Receive Date: 20101116
  Receipt Date: 20101110
  Transmission Date: 20110411
  Serious: Yes (Death, Hospitalization, Other)
  Sender: FDA-Public Use
  Company Number: US-CELGENEUS-163-21880-10062737

PATIENT
  Sex: Male

DRUGS (6)
  1. REVLIMID [Suspect]
     Indication: MULTIPLE MYELOMA
     Route: 048
     Dates: start: 20100213, end: 20100513
  2. OXYCONTIN [Concomitant]
     Indication: PAIN
     Route: 065
  3. OXYCODONE HCL [Concomitant]
     Indication: PAIN
     Route: 065
  4. OMEPRAZOLE [Concomitant]
     Route: 065
  5. DEXAMETHASONE [Concomitant]
     Indication: MULTIPLE MYELOMA
     Route: 065
  6. VITAMIN B-12 [Concomitant]
     Indication: VITAMIN B12 DEFICIENCY
     Route: 048

REACTIONS (5)
  - ATRIAL FIBRILLATION [None]
  - CARDIAC ARREST [None]
  - DEEP VEIN THROMBOSIS [None]
  - PANCYTOPENIA [None]
  - PULMONARY EMBOLISM [None]
